FAERS Safety Report 21597478 (Version 1)
Quarter: 2022Q4

REPORT INFORMATION
  Report Type: Other
  Country: US (occurrence: US)
  Receive Date: 20221115
  Receipt Date: 20221115
  Transmission Date: 20230113
  Serious: Yes (Hospitalization, Other)
  Sender: FDA-Public Use
  Company Number: US-Covis Pharma GmbH-2022COV22340

PATIENT
  Age: 0 Year

DRUGS (1)
  1. MAKENA [Suspect]
     Active Substance: HYDROXYPROGESTERONE CAPROATE
     Indication: Foetal exposure during pregnancy
     Route: 064
     Dates: start: 2022, end: 20221026

REACTIONS (2)
  - Cardiac disorder [Unknown]
  - Premature baby [Unknown]

NARRATIVE: CASE EVENT DATE: 20221030
